FAERS Safety Report 5084064-0 (Version None)
Quarter: 2006Q3

REPORT INFORMATION
  Report Type: 
  Country: None (occurrence: None)
  Receive Date: 20060820
  Receipt Date: 20060718
  Transmission Date: 20061208
  Serious: Yes (Life-Threatening, Hospitalization, Other)
  Sender: FDA-Public Use
  Company Number: US-ABBOTT-06P-163-0338653-00

PATIENT
  Age: 74 Year
  Sex: Female

DRUGS (8)
  1. FENOFIBRATE [Suspect]
     Indication: MIXED HYPERLIPIDAEMIA
     Dates: start: 20030516, end: 20031005
  2. EZETIMIBE [Suspect]
     Indication: MIXED HYPERLIPIDAEMIA
     Dates: start: 20030516, end: 20031016
  3. DOXAZOSIN MESYLATE [Concomitant]
     Indication: DRUG USE FOR UNKNOWN INDICATION
     Dates: start: 20030403, end: 20031006
  4. FUROSEMIDE [Concomitant]
     Indication: DRUG USE FOR UNKNOWN INDICATION
     Dates: start: 20030627, end: 20031006
  5. GLIPIZIDE [Concomitant]
     Indication: DRUG USE FOR UNKNOWN INDICATION
     Dates: start: 19940101, end: 20031006
  6. METFORMIN [Concomitant]
     Indication: DRUG USE FOR UNKNOWN INDICATION
     Dates: start: 20020913, end: 20031006
  7. METOPROLOL TARTRATE [Concomitant]
     Indication: DRUG USE FOR UNKNOWN INDICATION
     Dates: start: 19990929, end: 20031006
  8. PANTOPRAZOLE SODIUM [Concomitant]
     Indication: GASTRIC ULCER

REACTIONS (1)
  - CHOLANGITIS ACUTE [None]
